FAERS Safety Report 18531212 (Version 3)
Quarter: 2021Q1

REPORT INFORMATION
  Report Type: Spontaneous
  Country: US (occurrence: US)
  Receive Date: 20201122
  Receipt Date: 20210319
  Transmission Date: 20210419
  Serious: No
  Sender: FDA-Public Use
  Company Number: US-SA-2020SA330230

PATIENT
  Age: 23 Year
  Sex: Male

DRUGS (1)
  1. DUPIXENT [Suspect]
     Active Substance: DUPILUMAB
     Indication: ASTHMA
     Dosage: 300 MG, QOW
     Route: 058
     Dates: start: 20201001

REACTIONS (4)
  - Product dose omission in error [Unknown]
  - Injection site haemorrhage [Unknown]
  - Bowel movement irregularity [Unknown]
  - Product use issue [Unknown]

NARRATIVE: CASE EVENT DATE: 2020
